FAERS Safety Report 12718925 (Version 1)
Quarter: 2016Q3

REPORT INFORMATION
  Report Type: Other
  Country: US (occurrence: US)
  Receive Date: 20160906
  Receipt Date: 20160906
  Transmission Date: 20161109
  Serious: No
  Sender: FDA-Public Use
  Company Number: US-COL_20340_2015

PATIENT
  Sex: Female

DRUGS (2)
  1. COLGATE TOTAL ADVANCED WHITENING [Suspect]
     Active Substance: SODIUM FLUORIDE\TRICLOSAN
     Indication: PRODUCT USED FOR UNKNOWN INDICATION
     Dosage: COVERED THREE FOURTH OF BRUSH/BID/
     Route: 048
     Dates: start: 201507, end: 201507
  2. COLGATE TOTAL ADVANCED WHITENING [Suspect]
     Active Substance: SODIUM FLUORIDE\TRICLOSAN
     Dosage: COVERED THREE FOURTH OF BRUSH/BID/
     Route: 048
     Dates: start: 2014

REACTIONS (2)
  - Oral pain [Recovered/Resolved]
  - Stomatitis [Recovered/Resolved]
